FAERS Safety Report 5816837-8 (Version None)
Quarter: 2008Q3

REPORT INFORMATION
  Report Type: 
  Country: None (occurrence: None)
  Receive Date: 20080721
  Receipt Date: 20080711
  Transmission Date: 20090109
  Serious: Yes (Other)
  Sender: FDA-Public Use
  Company Number: US-ABBOTT-08P-163-0462228-00

PATIENT
  Sex: Female
  Weight: 54.48 kg

DRUGS (10)
  1. HUMIRA [Suspect]
     Indication: DRUG USE FOR UNKNOWN INDICATION
  2. VITAMIN TAB [Concomitant]
     Indication: DRUG USE FOR UNKNOWN INDICATION
     Route: 048
     Dates: start: 20071126
  3. FLINTSTONES MULTIVITAMINS WITH IRON [Concomitant]
     Indication: PREGNANCY
     Route: 048
     Dates: start: 20071214, end: 20080307
  4. HYDROXOCOBALAMIN ACETATE [Concomitant]
     Indication: DRUG USE FOR UNKNOWN INDICATION
     Route: 050
  5. PREGABALIN [Concomitant]
     Indication: FIBROMYALGIA
     Route: 048
     Dates: end: 20071210
  6. ALPRAZOLAM [Concomitant]
     Indication: ANXIETY
     Route: 048
     Dates: end: 20071124
  7. ALPRAZOLAM [Concomitant]
     Route: 048
     Dates: start: 20071125
  8. UNSPECIFIED PAIN MEDICATION [Concomitant]
     Indication: PAIN
     Route: 042
     Dates: start: 20080118, end: 20080119
  9. VICODIN [Concomitant]
     Indication: PAIN
     Route: 042
     Dates: start: 20080118, end: 20080119
  10. ACETAMINOPHEN [Concomitant]
     Indication: DRUG USE FOR UNKNOWN INDICATION
     Route: 048

REACTIONS (6)
  - CAESAREAN SECTION [None]
  - GLUCOSE TOLERANCE TEST ABNORMAL [None]
  - HAEMORRHAGE [None]
  - PRE-ECLAMPSIA [None]
  - PREMATURE LABOUR [None]
  - PYREXIA [None]
